FAERS Safety Report 9538730 (Version 4)
Quarter: 2013Q4

REPORT INFORMATION
  Report Type: Spontaneous
  Country: US (occurrence: None)
  Receive Date: 20130917
  Receipt Date: 20131108
  Transmission Date: 20140711
  Serious: Yes (Hospitalization)
  Sender: FDA-Public Use
  Company Number: ACO_38348_2013

PATIENT
  Age: 63 Year
  Sex: Female
  Weight: 51.2 kg

DRUGS (9)
  1. AMPYRA [Suspect]
     Indication: GAIT DISTURBANCE
     Route: 048
     Dates: start: 20130815, end: 20130816
  2. AMPYRA [Suspect]
     Indication: MULTIPLE SCLEROSIS
     Route: 048
     Dates: start: 20130815, end: 20130816
  3. AMLODIPINE (AMLODIPINE BESILATE) [Concomitant]
  4. MODAFINIL (MODAFINIL) [Concomitant]
  5. AVONEX (INTERFERON BETA-1A) [Concomitant]
  6. CALCIUM CITRATE (CALCIUM CITRATE) [Concomitant]
  7. VITAMIN D (ERGOCALCIFEROL) [Concomitant]
  8. PROLIA (DENOSUMAB) [Concomitant]
  9. TOLTERODINE (TOLTERODINE) [Concomitant]

REACTIONS (8)
  - Pancreatic enzymes increased [None]
  - Hypotension [None]
  - Body temperature decreased [None]
  - Vomiting [None]
  - Diarrhoea [None]
  - Muscular weakness [None]
  - Fall [None]
  - Nausea [None]
